FAERS Safety Report 6709718-9 (Version None)
Quarter: 2010Q2

REPORT INFORMATION
  Report Type: 
  Country: None (occurrence: None)
  Receive Date: 20100504
  Receipt Date: 20100426
  Transmission Date: 20101027
  Serious: Yes (Hospitalization)
  Sender: FDA-Public Use
  Company Number: US-JNJFOC-20100403262

PATIENT
  Sex: Male
  Weight: 56.7 kg

DRUGS (29)
  1. FENTANYL CITRATE [Suspect]
     Indication: BACK PAIN
     Dosage: 3 OF 100 UG/HR
     Route: 062
  2. FENTANYL CITRATE [Suspect]
     Dosage: 3 OF 100 UG/HR
     Route: 062
  3. FENTANYL CITRATE [Suspect]
     Route: 062
  4. FENTANYL CITRATE [Suspect]
     Dosage: 100 UG TWO EVERY 72 HOURS
     Route: 062
  5. FENTANYL CITRATE [Suspect]
     Indication: CHEST PAIN
     Route: 062
  6. FENTANYL CITRATE [Suspect]
     Dosage: 3 OF 100 UG/HR
     Route: 062
  7. FENTANYL CITRATE [Suspect]
     Dosage: 3 OF 100 UG/HR
     Route: 062
  8. FENTANYL CITRATE [Suspect]
     Dosage: 100 UG TWO EVERY 72 HOURS
     Route: 062
  9. FENTANYL CITRATE [Suspect]
     Indication: PAIN
     Route: 062
  10. FENTANYL CITRATE [Suspect]
     Dosage: 100 UG TWO EVERY 72 HOURS
     Route: 062
  11. FENTANYL CITRATE [Suspect]
     Dosage: 3 OF 100 UG/HR
     Route: 062
  12. FENTANYL CITRATE [Suspect]
     Dosage: 3 OF 100 UG/HR
     Route: 062
  13. FENTANYL CITRATE [Suspect]
     Route: 062
  14. FENTANYL CITRATE [Suspect]
     Dosage: 3 OF 100 UG/HR
     Route: 062
  15. FENTANYL CITRATE [Suspect]
     Route: 062
  16. FENTANYL CITRATE [Suspect]
     Dosage: 3 OF 100 UG/HR
     Route: 062
  17. FENTANYL CITRATE [Suspect]
     Dosage: 3 OF 100 UG/HR
     Route: 062
  18. FENTANYL CITRATE [Suspect]
     Route: 062
  19. FENTANYL CITRATE [Suspect]
     Indication: BACK PAIN
     Dosage: 3 OF 100 UG/HR
     Route: 062
  20. FENTANYL CITRATE [Suspect]
     Indication: CHEST PAIN
     Dosage: 3 OF 100 UG/HR
     Route: 062
  21. DURAGESIC-100 [Suspect]
     Indication: BACK PAIN
     Route: 062
  22. DURAGESIC-100 [Suspect]
     Indication: CHEST PAIN
     Route: 062
  23. DURAGESIC-100 [Suspect]
     Route: 062
  24. DURAGESIC-100 [Suspect]
     Route: 062
  25. VALIUM [Concomitant]
     Indication: ANXIETY
     Route: 048
  26. DILAUDID [Concomitant]
     Indication: BREAKTHROUGH PAIN
     Dosage: EVERY 3-4 HOURS AS NEEDED
     Route: 048
  27. NEXIUM [Concomitant]
     Dosage: ONCE IN MORNING
     Route: 048
  28. VIOKASE [Concomitant]
     Indication: DYSPEPSIA
     Dosage: ONE BEFORE EACH MEAL
     Route: 048
  29. NPH INSULIN [Concomitant]
     Route: 058

REACTIONS (9)
  - CHOLELITHIASIS [None]
  - DECREASED APPETITE [None]
  - DEVICE RELATED INFECTION [None]
  - DRUG ADMINISTERED AT INAPPROPRIATE SITE [None]
  - PRODUCT ADHESION ISSUE [None]
  - VOMITING [None]
  - WEIGHT DECREASED [None]
  - WITHDRAWAL SYNDROME [None]
  - WRONG TECHNIQUE IN DRUG USAGE PROCESS [None]
